FAERS Safety Report 18064256 (Version 1)
Quarter: 2020Q3

REPORT INFORMATION
  Report Type: Spontaneous
  Country: US (occurrence: US)
  Receive Date: 20200723
  Receipt Date: 20200723
  Transmission Date: 20201103
  Serious: Yes (Hospitalization)
  Sender: FDA-Public Use
  Company Number: None

PATIENT
  Age: 74 Year
  Sex: Female

DRUGS (1)
  1. COPAXONE [Suspect]
     Active Substance: GLATIRAMER ACETATE
     Indication: MULTIPLE SCLEROSIS
     Dosage: OTHER
     Route: 058
     Dates: start: 20180416

REACTIONS (7)
  - Arthritis [None]
  - Clostridium difficile infection [None]
  - Loss of personal independence in daily activities [None]
  - Haemorrhage [None]
  - Fall [None]
  - Subdural haematoma [None]
  - Orthostatic hypotension [None]

NARRATIVE: CASE EVENT DATE: 20200717
